FAERS Safety Report 6363495-2 (Version None)
Quarter: 2009Q3

REPORT INFORMATION
  Report Type: 
  Country: None (occurrence: None)
  Receive Date: 20090919
  Receipt Date: 20090629
  Transmission Date: 20100115
  Serious: No
  Sender: FDA-Public Use
  Company Number: US-ABBOTT-09P-163-0582528-00

PATIENT
  Sex: Female
  Weight: 52.21 kg

DRUGS (3)
  1. HUMIRA [Suspect]
     Indication: RHEUMATOID ARTHRITIS
     Dates: start: 20090626
  2. METHOTREXATE [Concomitant]
     Indication: DRUG USE FOR UNKNOWN INDICATION
     Dates: start: 20080905
  3. HYDROXYCHLOROQUINE [Concomitant]
     Indication: DRUG USE FOR UNKNOWN INDICATION
     Dates: start: 20081205

REACTIONS (5)
  - DYSPNOEA [None]
  - FATIGUE [None]
  - INFLUENZA LIKE ILLNESS [None]
  - INJECTION SITE IRRITATION [None]
  - PYREXIA [None]
